FAERS Safety Report 14013947 (Version 1)
Quarter: 2017Q3

REPORT INFORMATION
  Report Type: Report from Study
  Country: US (occurrence: US)
  Receive Date: 20170926
  Receipt Date: 20170926
  Transmission Date: 20171128
  Serious: Yes (Other)
  Sender: FDA-Public Use
  Company Number: PHEH2017US030088

PATIENT
  Sex: Male

DRUGS (1)
  1. VOTRIENT [Suspect]
     Active Substance: PAZOPANIB HYDROCHLORIDE
     Indication: NEOPLASM MALIGNANT
     Dosage: UNK
     Route: 065

REACTIONS (5)
  - Gastrointestinal injury [Unknown]
  - Feeding disorder [Unknown]
  - Gastrooesophageal reflux disease [Unknown]
  - Oral discomfort [Unknown]
  - Stomatitis [Unknown]
